FAERS Safety Report 21486563 (Version 1)
Quarter: 2022Q4

REPORT INFORMATION
  Report Type: Spontaneous
  Country: US (occurrence: US)
  Receive Date: 20221020
  Receipt Date: 20221020
  Transmission Date: 20230113
  Serious: Yes (Other)
  Sender: FDA-Public Use
  Company Number: US-SA-SAC20221018002103

PATIENT
  Age: 39 Year
  Sex: Female

DRUGS (1)
  1. ZANTAC [Suspect]
     Active Substance: RANITIDINE HYDROCHLORIDE
     Indication: Dyspepsia
     Dosage: 150 MG; QD
     Dates: start: 198301, end: 202001

REACTIONS (5)
  - Lung carcinoma cell type unspecified stage IV [Not Recovered/Not Resolved]
  - Uterine cancer [Unknown]
  - Pancreatic carcinoma [Unknown]
  - Gastric cancer [Unknown]
  - Breast cancer female [Unknown]

NARRATIVE: CASE EVENT DATE: 20040101
